FAERS Safety Report 24903513 (Version 2)
Quarter: 2025Q1

REPORT INFORMATION
  Report Type: Spontaneous
  Country: US (occurrence: US)
  Receive Date: 20250130
  Receipt Date: 20250212
  Transmission Date: 20250408
  Serious: Yes (Other)
  Sender: TEVA
  Company Number: US-TEVA-VS-3289693

PATIENT
  Age: 73 Year
  Sex: Female

DRUGS (4)
  1. PREDNISONE [Suspect]
     Active Substance: PREDNISONE
     Indication: Acute febrile neutrophilic dermatosis
     Dosage: 0.75?MG/KG
     Route: 065
  2. PREDNISONE [Suspect]
     Active Substance: PREDNISONE
     Indication: Acute febrile neutrophilic dermatosis
     Route: 065
  3. IADADEMSTAT [Concomitant]
     Active Substance: IADADEMSTAT
     Indication: Acute myeloid leukaemia
     Route: 065
  4. GILTERITINIB [Concomitant]
     Active Substance: GILTERITINIB
     Indication: Acute myeloid leukaemia
     Route: 065

REACTIONS (3)
  - Acute febrile neutrophilic dermatosis [Recovered/Resolved]
  - Rebound effect [Unknown]
  - Disease recurrence [Unknown]
